FAERS Safety Report 8173558-7 (Version None)
Quarter: 2012Q1

REPORT INFORMATION
  Report Type: 
  Country: None (occurrence: None)
  Receive Date: 20120223
  Receipt Date: 20120126
  Transmission Date: 20120608
  Serious: Yes (Hospitalization)
  Sender: FDA-Public Use
  Company Number: BR-025193

PATIENT
  Age: 76 Year
  Sex: Male

DRUGS (1)
  1. (CHLORAMBUCIL) [Suspect]
     Indication: CHRONIC LYMPHOCYTIC LEUKAEMIA
     Dosage: TABLET 31 MG 31MG CYCLIC ORAL
     Route: 048
     Dates: start: 20111116

REACTIONS (5)
  - BONE MARROW LEUKAEMIC CELL INFILTRATION [None]
  - ERYSIPELAS [None]
  - ABDOMINAL PAIN UPPER [None]
  - DIARRHOEA [None]
  - FEBRILE NEUTROPENIA [None]
